FAERS Safety Report 5709307-9 (Version None)
Quarter: 2008Q2

REPORT INFORMATION
  Report Type: 
  Country: None (occurrence: None)
  Receive Date: 20080417
  Receipt Date: 20080417
  Transmission Date: 20081010
  Serious: No
  Sender: FDA-Public Use
  Company Number: None

PATIENT
  Age: 40 Year
  Sex: Female

DRUGS (1)
  1. TYSABRI [Suspect]
     Indication: MULTIPLE SCLEROSIS
     Dosage: 300 MG EVERY 4 WEEKS IV
     Route: 042
     Dates: start: 20080404

REACTIONS (7)
  - ANXIETY [None]
  - BLOOD PRESSURE DECREASED [None]
  - CHEST PAIN [None]
  - COLD SWEAT [None]
  - ERYTHEMA [None]
  - FEELING ABNORMAL [None]
  - PRURITUS [None]
